FAERS Safety Report 9186166 (Version 2)
Quarter: 2013Q2

REPORT INFORMATION
  Report Type: Spontaneous
  Country: US (occurrence: None)
  Receive Date: 20130321
  Receipt Date: 20130426
  Transmission Date: 20140414
  Serious: Yes (Hospitalization)
  Sender: FDA-Public Use
  Company Number: 2013PL000051

PATIENT
  Age: 34 Month
  Sex: Male
  Weight: 11.6 kg

DRUGS (13)
  1. PROLEUKIN FOR INJECTION [Suspect]
     Indication: NEUROBLASTOMA
     Dosage: 2.4 MIU; X1
     Route: 042
     Dates: start: 20121126, end: 20121129
  2. GM-CSF [Concomitant]
  3. ACCUTANE [Concomitant]
  4. ACETAMINOPHEN [Concomitant]
  5. CEFEPIME [Concomitant]
  6. DIPHENHYDRAMINE [Concomitant]
  7. FUROSEMIDE [Concomitant]
  8. INFLUENZA VIRUS [Concomitant]
  9. MORPHINE [Concomitant]
  10. POLYETHYLENE GLYCOL [Concomitant]
  11. SULFAMETHOXAZOLE [Concomitant]
  12. ALBUMIN HUMAN [Concomitant]
  13. POTASSIUM IODIDE [Concomitant]

REACTIONS (8)
  - Dehydration [None]
  - Hypophagia [None]
  - Toothache [None]
  - Diarrhoea [None]
  - Blood creatinine increased [None]
  - Blood urea increased [None]
  - Blood potassium increased [None]
  - Carbon dioxide decreased [None]
